FAERS Safety Report 12807613 (Version 1)
Quarter: 2016Q4

REPORT INFORMATION
  Report Type: Spontaneous
  Country: US (occurrence: US)
  Receive Date: 20161004
  Receipt Date: 20161004
  Transmission Date: 20170207
  Serious: No
  Sender: FDA-Public Use
  Company Number: US-AMGEN-USASP2016011404

PATIENT

DRUGS (1)
  1. XGEVA [Suspect]
     Active Substance: DENOSUMAB
     Indication: HYPERCALCAEMIA OF MALIGNANCY
     Dosage: 120 MG, UNK
     Route: 065

REACTIONS (1)
  - Off label use [Unknown]
